FAERS Safety Report 9210596 (Version 1)
Quarter: 2013Q2

REPORT INFORMATION
  Report Type: Spontaneous
  Country: US (occurrence: US)
  Receive Date: 20130404
  Receipt Date: 20130404
  Transmission Date: 20140414
  Serious: Yes (Hospitalization)
  Sender: FDA-Public Use
  Company Number: US-BAYER-2013-041156

PATIENT
  Sex: Female

DRUGS (2)
  1. STIVARGA [Suspect]
     Dosage: UNK
  2. STIVARGA [Suspect]
     Dosage: UNK

REACTIONS (1)
  - Rash [None]
